FAERS Safety Report 10050394 (Version 1)
Quarter: 2014Q2

REPORT INFORMATION
  Report Type: Spontaneous
  Country: US (occurrence: US)
  Receive Date: 20140401
  Receipt Date: 20140401
  Transmission Date: 20141212
  Serious: Yes (Other)
  Sender: FDA-Public Use
  Company Number: US-BRISTOL-MYERS SQUIBB COMPANY-20567111

PATIENT
  Age: 59 Year
  Sex: Male
  Weight: 60.77 kg

DRUGS (1)
  1. BARACLUDE [Suspect]
     Dosage: INTERRUPTED ON: 2012?RESUMED ON : FEB2014
     Dates: start: 2004

REACTIONS (4)
  - Yellow skin [Unknown]
  - Ocular icterus [Unknown]
  - Chromaturia [Unknown]
  - Weight decreased [Unknown]
